FAERS Safety Report 5718905-8 (Version None)
Quarter: 2008Q2

REPORT INFORMATION
  Report Type: 
  Country: None (occurrence: None)
  Receive Date: 20080425
  Receipt Date: 20080417
  Transmission Date: 20081010
  Serious: Yes (Other)
  Sender: FDA-Public Use
  Company Number: US-MERCK-0804USA03901

PATIENT
  Age: 5 Year
  Sex: Male

DRUGS (3)
  1. SINGULAIR [Suspect]
     Indication: HYPERSENSITIVITY
     Route: 048
     Dates: start: 20060301, end: 20080401
  2. FLONASE [Concomitant]
     Route: 065
  3. XOPENEX [Concomitant]
     Route: 065

REACTIONS (1)
  - ABNORMAL DREAMS [None]
